FAERS Safety Report 5647766-0 (Version None)
Quarter: 2008Q1

REPORT INFORMATION
  Report Type: 
  Country: None (occurrence: None)
  Receive Date: 20080303
  Receipt Date: 20080222
  Transmission Date: 20080703
  Serious: Yes (Other)
  Sender: FDA-Public Use
  Company Number: US-ABBOTT-08P-163-0439585-00

PATIENT
  Sex: Male
  Weight: 104.5 kg

DRUGS (3)
  1. VICOPROFEN [Suspect]
     Indication: ARTHROPATHY
     Dosage: 7.5/200 MILLIGRAM
     Dates: start: 20080123, end: 20080124
  2. PREGABALIN [Suspect]
     Indication: CONVULSION
     Dates: start: 20070701
  3. SERTRALINE [Concomitant]
     Indication: PANIC ATTACK

REACTIONS (7)
  - ADVERSE DRUG REACTION [None]
  - ANGER [None]
  - DEPRESSED MOOD [None]
  - DYSKINESIA [None]
  - FEAR [None]
  - MALAISE [None]
  - TREMOR [None]
